FAERS Safety Report 11778236 (Version 1)
Quarter: 2015Q4

REPORT INFORMATION
  Report Type: Report from Study
  Country: US (occurrence: US)
  Receive Date: 20151125
  Receipt Date: 20151125
  Transmission Date: 20160304
  Serious: Yes (Other)
  Sender: FDA-Public Use
  Company Number: US-MYLANLABS-2015M1041859

PATIENT

DRUGS (3)
  1. REOLYSIN [Suspect]
     Active Substance: PELAREOREP
     Indication: PLASMA CELL MYELOMA
     Dosage: 3 X 1010 TCID50/DAY ON DAYS 1, 2, 8, 9, 15 AND 16 OF A 28 DAY CYCLE
     Route: 065
  2. DEXAMETHASONE. [Suspect]
     Active Substance: DEXAMETHASONE
     Indication: PLASMA CELL MYELOMA
     Dosage: 20 MG ON DAYS 1, 2, 8, 9, 15 AND 16 OF A 28 DAY CYCLE
     Route: 065
  3. CARFILZOMIB [Suspect]
     Active Substance: CARFILZOMIB
     Indication: PLASMA CELL MYELOMA
     Dosage: 20 MG/M 2 ON DAYS 1 AND 2 OF CYCLE 1 AND 27 MG/M 2 THEREAFTER
     Route: 042

REACTIONS (3)
  - Thrombocytopenia [Unknown]
  - Gastrointestinal haemorrhage [Unknown]
  - Arteriovenous malformation [Unknown]
